FAERS Safety Report 14795221 (Version 2)
Quarter: 2018Q3

REPORT INFORMATION
  Report Type: Report from Study
  Country: US (occurrence: US)
  Receive Date: 20180423
  Receipt Date: 20180710
  Transmission Date: 20181010
  Serious: Yes (Death, Hospitalization)
  Sender: FDA-Public Use
  Company Number: US-ACTELION-A-NJ2017-149590

PATIENT
  Age: 75 Year
  Sex: Female
  Weight: 70.3 kg

DRUGS (4)
  1. OPSUMIT [Suspect]
     Active Substance: MACITENTAN
     Indication: PULMONARY ARTERIAL HYPERTENSION
     Dosage: 10 MG, QD
     Route: 048
  2. UPTRAVI [Suspect]
     Active Substance: SELEXIPAG
     Indication: PULMONARY ARTERIAL HYPERTENSION
     Dosage: 1600 MCG, BID
     Route: 048
  3. SILDENAFIL. [Concomitant]
     Active Substance: SILDENAFIL
  4. ELIQUIS [Concomitant]
     Active Substance: APIXABAN

REACTIONS (9)
  - Diarrhoea [Unknown]
  - Neuropathy peripheral [Unknown]
  - Influenza [Unknown]
  - Urinary tract infection [Unknown]
  - Dysphagia [Unknown]
  - Colitis [Unknown]
  - Pneumonia [Unknown]
  - Nasopharyngitis [Unknown]
  - Death [Fatal]

NARRATIVE: CASE EVENT DATE: 20180628
